FAERS Safety Report 7525944-3 (Version None)
Quarter: 2011Q2

REPORT INFORMATION
  Report Type: 
  Country: None (occurrence: None)
  Receive Date: 20110603
  Receipt Date: 20110603
  Transmission Date: 20111010
  Serious: Yes (Other)
  Sender: FDA-Public Use
  Company Number: None

PATIENT

DRUGS (2)
  1. AMBIEN CR [Suspect]
  2. ALCOHOL [Suspect]

REACTIONS (6)
  - AGGRESSION [None]
  - CRYING [None]
  - LOSS OF CONSCIOUSNESS [None]
  - THINKING ABNORMAL [None]
  - DRUG DEPENDENCE [None]
  - MARITAL PROBLEM [None]
